FAERS Safety Report 14027939 (Version 1)
Quarter: 2017Q3

REPORT INFORMATION
  Report Type: Spontaneous
  Country: SE (occurrence: SE)
  Receive Date: 20170929
  Receipt Date: 20170929
  Transmission Date: 20171128
  Serious: Yes (Other)
  Sender: FDA-Public Use
  Company Number: SE-NOVOPROD-564913

PATIENT
  Age: 47 Year
  Sex: Female

DRUGS (1)
  1. GLUCAGON. [Suspect]
     Active Substance: GLUCAGON
     Indication: NUCLEAR MAGNETIC RESONANCE IMAGING
     Dosage: 1 MG
     Route: 030
     Dates: start: 20170914, end: 20170914

REACTIONS (2)
  - Nausea [Recovered/Resolved]
  - Dizziness [Recovered/Resolved]

NARRATIVE: CASE EVENT DATE: 20170914
